FAERS Safety Report 24279982 (Version 1)
Quarter: 2024Q3

REPORT INFORMATION
  Report Type: Spontaneous
  Country: NL (occurrence: NL)
  Receive Date: 20240904
  Receipt Date: 20240904
  Transmission Date: 20241017
  Serious: Yes (Death)
  Sender: ABBVIE
  Company Number: None

PATIENT
  Age: 50 Year
  Sex: Male
  Weight: 66 kg

DRUGS (2)
  1. IMBRUVICA [Suspect]
     Active Substance: IBRUTINIB
     Indication: Mantle cell lymphoma
     Dosage: 1 PIECE ONCE A DAY
     Route: 048
     Dates: start: 20240315, end: 20240715
  2. ZOPICLONE [Suspect]
     Active Substance: ZOPICLONE
     Indication: Sleep disorder
     Route: 065
     Dates: start: 20000110

REACTIONS (1)
  - Subdural haemorrhage [Fatal]
